FAERS Safety Report 25927612 (Version 1)
Quarter: 2025Q4

REPORT INFORMATION
  Report Type: Spontaneous
  Country: US (occurrence: US)
  Receive Date: 20251016
  Receipt Date: 20251016
  Transmission Date: 20260118
  Serious: Yes (Hospitalization, Other)
  Sender: SANDOZ
  Company Number: US-GLAXOSMITHKLINE-USCH2023AMR039178

PATIENT
  Age: 69 Year
  Sex: Male

DRUGS (1)
  1. DICLOFENAC [Suspect]
     Active Substance: DICLOFENAC
     Indication: Product used for unknown indication
     Dosage: UNK, (FOR MANY MONTHS)
     Route: 065

REACTIONS (4)
  - Glomerulonephritis minimal lesion [Recovering/Resolving]
  - Azotaemia [Unknown]
  - Proteinuria [Recovering/Resolving]
  - Albuminuria [Unknown]
